FAERS Safety Report 17104096 (Version 1)
Quarter: 2019Q4

REPORT INFORMATION
  Report Type: Spontaneous
  Country: US (occurrence: US)
  Receive Date: 20191203
  Receipt Date: 20191203
  Transmission Date: 20200122
  Serious: Yes (Other)
  Sender: FDA-Public Use
  Company Number: US-AKORN PHARMACEUTICALS-2019AKN02416

PATIENT
  Age: 16 Year
  Sex: Male
  Weight: 59.41 kg

DRUGS (2)
  1. MYORISAN [Suspect]
     Active Substance: ISOTRETINOIN
     Indication: ACNE CYSTIC
     Dosage: 20 MG, 2X/DAY
     Route: 048
     Dates: start: 20191008, end: 201910
  2. MYORISAN [Suspect]
     Active Substance: ISOTRETINOIN
     Indication: ACNE CYSTIC
     Dosage: 10 MG, 2X/DAY
     Route: 048
     Dates: start: 20190911, end: 20191007

REACTIONS (1)
  - Paediatric autoimmune neuropsychiatric disorders associated with streptococcal infection [Recovered/Resolved]

NARRATIVE: CASE EVENT DATE: 201910
